FAERS Safety Report 26016176 (Version 2)
Quarter: 2025Q4

REPORT INFORMATION
  Report Type: Spontaneous
  Country: NZ (occurrence: NZ)
  Receive Date: 20251110
  Receipt Date: 20251127
  Transmission Date: 20260117
  Serious: Yes (Other)
  Sender: SANDOZ
  Company Number: NZ-SANDOZ-SDZ2025NZ082374

PATIENT
  Sex: Female

DRUGS (1)
  1. ESTRADIOL [Suspect]
     Active Substance: ESTRADIOL
     Indication: Product used for unknown indication
     Dosage: 100 MG
     Route: 062

REACTIONS (11)
  - Symptom recurrence [Unknown]
  - Menopausal symptoms [Unknown]
  - Anger [Unknown]
  - Tearfulness [Unknown]
  - Insomnia [Unknown]
  - Self esteem decreased [Unknown]
  - Arthralgia [Unknown]
  - Anxiety [Unknown]
  - Depressed mood [Unknown]
  - Drug ineffective [Unknown]
  - Product adhesion issue [Unknown]
